FAERS Safety Report 10084620 (Version 1)
Quarter: 2014Q2

REPORT INFORMATION
  Report Type: Spontaneous
  Country: FR (occurrence: FR)
  Receive Date: 20140417
  Receipt Date: 20140417
  Transmission Date: 20141212
  Serious: Yes (Hospitalization)
  Sender: FDA-Public Use
  Company Number: FR-PFIZER INC-2014102938

PATIENT
  Age: 22 Year
  Sex: Female

DRUGS (10)
  1. EFFEXOR [Suspect]
     Indication: ANXIETY
     Dosage: UNK
     Route: 048
     Dates: start: 20070206, end: 20070306
  2. EFFEXOR [Interacting]
     Dosage: UNK
     Route: 048
     Dates: start: 20070306, end: 20070331
  3. PROGRAF [Interacting]
     Dosage: 1 MG, UNK
     Route: 048
  4. PROGRAF [Interacting]
     Dosage: 1 MG, 2X/DAY
     Route: 048
     Dates: start: 200804, end: 200904
  5. AUGMENTIN [Suspect]
     Dosage: 1 DF OF 1 G OF AMOXICILLIN/125 MG OF CLAVULANIC ACID, 3X/DAY
     Route: 048
     Dates: start: 20090310, end: 20090313
  6. TAVANIC [Suspect]
     Dosage: 500 MG, UNK
     Route: 048
     Dates: start: 20070313, end: 20070315
  7. TAVANIC [Suspect]
     Dosage: 500 MG, UNK
     Route: 048
     Dates: start: 20090310, end: 20090312
  8. DUROGESIC [Interacting]
     Dosage: 1 DF OF 12 ?G/H THRICE DAILY
     Route: 062
     Dates: start: 20070309
  9. ACTIQ [Interacting]
     Dosage: 200 UG, 3X/DAY
     Route: 002
  10. LEVETIRACETAM [Concomitant]

REACTIONS (2)
  - Convulsion [Not Recovered/Not Resolved]
  - Drug interaction [Not Recovered/Not Resolved]
